FAERS Safety Report 5958161-9 (Version None)
Quarter: 2008Q4

REPORT INFORMATION
  Report Type: 
  Country: None (occurrence: None)
  Receive Date: 20081117
  Receipt Date: 20081117
  Transmission Date: 20090506
  Serious: Yes (Hospitalization)
  Sender: FDA-Public Use
  Company Number: None

PATIENT
  Sex: Male
  Weight: 104.3273 kg

DRUGS (5)
  1. PRAVASTATIN [Suspect]
     Indication: LIPIDS INCREASED
     Dosage: 40 MG ONCE DAILY PO
     Route: 048
  2. JANUVIA [Suspect]
     Indication: TYPE 2 DIABETES MELLITUS
     Dosage: 100 MG ONCE DAILY PO
     Route: 048
     Dates: start: 20081002, end: 20081103
  3. DICOLOFENACE [Concomitant]
  4. LISINOPRIL/HCT [Concomitant]
  5. NOVOLOG [Concomitant]

REACTIONS (1)
  - HEPATIC ENZYME INCREASED [None]
